FAERS Safety Report 14928503 (Version 4)
Quarter: 2018Q2

REPORT INFORMATION
  Report Type: Spontaneous
  Country: US (occurrence: US)
  Receive Date: 20180523
  Receipt Date: 20180619
  Transmission Date: 20180711
  Serious: Yes (Hospitalization, Other)
  Sender: FDA-Public Use
  Company Number: US-PFIZER INC-2018208308

PATIENT
  Age: 77 Year
  Sex: Male
  Weight: 86.58 kg

DRUGS (3)
  1. GEMCITABINE HYDROCHLORIDE. [Suspect]
     Active Substance: GEMCITABINE HYDROCHLORIDE
     Indication: PANCREATIC CARCINOMA
     Dosage: UNK
     Dates: start: 201005
  2. GEMCITABINE HYDROCHLORIDE. [Suspect]
     Active Substance: GEMCITABINE HYDROCHLORIDE
     Dosage: 2040 MG, UNK
     Route: 042
     Dates: start: 20180510, end: 20180510
  3. ABRAXANE [Concomitant]
     Active Substance: PACLITAXEL
     Indication: PANCREATIC CARCINOMA
     Dosage: 225 MG, UNK
     Dates: start: 20180510, end: 20180510

REACTIONS (15)
  - Lethargy [Recovering/Resolving]
  - Blood creatinine increased [Unknown]
  - Duodenal ulcer [Unknown]
  - Blood urea increased [Unknown]
  - Feeling abnormal [Recovering/Resolving]
  - Hiatus hernia [Unknown]
  - Abdominal discomfort [Unknown]
  - Fatigue [Not Recovered/Not Resolved]
  - Diarrhoea [Unknown]
  - Malaise [Not Recovered/Not Resolved]
  - Nausea [Not Recovered/Not Resolved]
  - Dysphagia [Unknown]
  - Eating disorder [Recovering/Resolving]
  - Asthenia [Not Recovered/Not Resolved]
  - Oesophagitis ulcerative [Unknown]

NARRATIVE: CASE EVENT DATE: 20180510
